FAERS Safety Report 8490421-2 (Version None)
Quarter: 2012Q3

REPORT INFORMATION
  Report Type: 
  Country: None (occurrence: None)
  Receive Date: 20120705
  Receipt Date: 20120629
  Transmission Date: 20120928
  Serious: Yes (Other)
  Sender: FDA-Public Use
  Company Number: US-BAYER-2012-065547

PATIENT
  Age: 40 Year
  Sex: Male
  Weight: 63 kg

DRUGS (2)
  1. VENTOLIN [Concomitant]
     Dosage: AS NEEDED
  2. ASPIRIN [Suspect]
     Indication: HEADACHE
     Dosage: 5 TAB EVERY 2 HRS, TOOK IN TOTAL 40.
     Route: 048
     Dates: end: 20120629

REACTIONS (1)
  - NAUSEA [None]
